FAERS Safety Report 14353666 (Version 1)
Quarter: 2018Q1

REPORT INFORMATION
  Report Type: Spontaneous
  Country: US (occurrence: US)
  Receive Date: 20180105
  Receipt Date: 20180105
  Transmission Date: 20180509
  Serious: No
  Sender: FDA-Public Use
  Company Number: US-SHIRE-US201732235

PATIENT
  Sex: Female

DRUGS (1)
  1. XIIDRA [Suspect]
     Active Substance: LIFITEGRAST
     Indication: DRY EYE
     Dosage: 1 GTT, IN RIGHT EYE, ONE TIME
     Route: 047
     Dates: start: 20171122, end: 20171122

REACTIONS (2)
  - Product packaging issue [Unknown]
  - Superficial injury of eye [Recovering/Resolving]
